FAERS Safety Report 8481532-6 (Version None)
Quarter: 2012Q2

REPORT INFORMATION
  Report Type: 
  Country: None (occurrence: None)
  Receive Date: 20120619
  Receipt Date: 20120611
  Transmission Date: 20120825
  Serious: Yes (Hospitalization)
  Sender: FDA-Public Use
  Company Number: 2012SP005705

PATIENT
  Sex: Male

DRUGS (4)
  1. ZOLPIDEM TARTRATE [Suspect]
     Indication: PREGNANCY
     Dosage: TRPL
     Route: 064
  2. ALPRAZOLAM [Suspect]
     Indication: PREGNANCY
     Dosage: TRPL
     Route: 064
  3. MIRTAZAPINE [Suspect]
     Indication: PREGNANCY
     Dosage: TRPL
     Route: 064
  4. ZOLOFT [Suspect]
     Indication: PREGNANCY
     Dosage: TRPL
     Route: 064

REACTIONS (5)
  - VOMITING NEONATAL [None]
  - IRRITABILITY [None]
  - JAUNDICE [None]
  - MATERNAL DRUGS AFFECTING FOETUS [None]
  - WEIGHT DECREASED [None]
